FAERS Safety Report 6711416-2 (Version None)
Quarter: 2010Q2

REPORT INFORMATION
  Report Type: 
  Country: None (occurrence: None)
  Receive Date: 20100505
  Receipt Date: 20100423
  Transmission Date: 20101027
  Serious: Yes (Life-Threatening, Hospitalization)
  Sender: FDA-Public Use
  Company Number: JP-SANOFI-AVENTIS-2010SA024669

PATIENT
  Sex: Male

DRUGS (5)
  1. NATRIX [Suspect]
     Indication: HYPERTENSION
     Route: 048
     Dates: end: 20100121
  2. FAMOTIDINE [Concomitant]
     Indication: DRUG USE FOR UNKNOWN INDICATION
     Route: 065
     Dates: end: 20100121
  3. SODIUM GUALENATE [Concomitant]
     Indication: DRUG USE FOR UNKNOWN INDICATION
     Route: 065
     Dates: end: 20100121
  4. ROSUVASTATIN CALCIUM [Concomitant]
     Indication: DRUG USE FOR UNKNOWN INDICATION
     Route: 065
     Dates: end: 20100121
  5. PIPETHANATE HYDROCHLORIDE [Concomitant]
     Indication: DRUG USE FOR UNKNOWN INDICATION
     Route: 065
     Dates: end: 20100121

REACTIONS (4)
  - BRADYCARDIA [None]
  - HYPOKALAEMIA [None]
  - HYPONATRAEMIA [None]
  - VENTRICULAR FIBRILLATION [None]
